FAERS Safety Report 4989059-0 (Version None)
Quarter: 2006Q2

REPORT INFORMATION
  Report Type: 
  Country: None (occurrence: None)
  Receive Date: 20060425
  Receipt Date: 20060413
  Transmission Date: 20061013
  Serious: Yes (Hospitalization)
  Sender: FDA-Public Use
  Company Number: 2006051384

PATIENT
  Age: 58 Year
  Sex: Female
  Weight: 54.8 kg

DRUGS (8)
  1. EPIRUBICIN [Suspect]
     Indication: BREAST CANCER
     Dosage: 120 MG (1 IN 1 D), INTRAVENOUS
     Route: 042
     Dates: start: 20060313, end: 20060313
  2. CYCLOPHOSPHAMIDE [Suspect]
     Indication: BREAST CANCER
     Dosage: 800 MG (1 IN 1 D), INTRAVENOUS
     Route: 042
     Dates: start: 20060313, end: 20060313
  3. FLUOROURACIL [Suspect]
     Indication: BREAST CANCER
     Dosage: 750 MG (750 MG), INTRAVENOUS
     Route: 042
     Dates: start: 20060313, end: 20060313
  4. NORVASC [Concomitant]
  5. OXYCONTIN [Concomitant]
  6. DEPAS (ETIZOLAM) [Concomitant]
  7. FAMOTIDINE [Concomitant]
  8. PACLITAXEL [Concomitant]

REACTIONS (1)
  - INTERSTITIAL LUNG DISEASE [None]
